FAERS Safety Report 9286997 (Version 1)
Quarter: 2013Q2

REPORT INFORMATION
  Report Type: Spontaneous
  Country: US (occurrence: None)
  Receive Date: 20130508
  Receipt Date: 20130508
  Transmission Date: 20140414
  Serious: Yes (Other)
  Sender: FDA-Public Use
  Company Number: 1695470

PATIENT
  Sex: 0

DRUGS (2)
  1. (HEPARIN SODIUM) [Suspect]
     Indication: ANTICOAGULANT THERAPY
  2. WARFARIN [Suspect]
     Indication: ANTICOAGULANT THERAPY

REACTIONS (7)
  - Hypotension [None]
  - Haemorrhage [None]
  - Renal cell carcinoma [None]
  - Deep vein thrombosis [None]
  - Pulmonary embolism [None]
  - Haematocrit decreased [None]
  - Haemoglobin decreased [None]
